FAERS Safety Report 24818175 (Version 2)
Quarter: 2025Q1

REPORT INFORMATION
  Report Type: Spontaneous
  Country: US (occurrence: US)
  Receive Date: 20250108
  Receipt Date: 20250110
  Transmission Date: 20250409
  Serious: Yes (Other)
  Sender: DR REDDYS
  Company Number: US-DRL-USA-USA/2025/01/000278

PATIENT
  Age: 60 Year
  Sex: Male

DRUGS (2)
  1. SEVELAMER [Suspect]
     Active Substance: SEVELAMER
     Indication: End stage renal disease
  2. HEPARIN [Suspect]
     Active Substance: HEPARIN SODIUM
     Indication: Atrial flutter

REACTIONS (5)
  - Melaena [Recovered/Resolved]
  - Large intestinal ulcer [Unknown]
  - Large intestine erosion [Unknown]
  - Anaemia [Unknown]
  - Product use in unapproved indication [Unknown]
